FAERS Safety Report 5731305-X (Version None)
Quarter: 2008Q2

REPORT INFORMATION
  Report Type: 
  Country: None (occurrence: None)
  Receive Date: 20080505
  Receipt Date: 20080424
  Transmission Date: 20081010
  Serious: Yes (Other)
  Sender: FDA-Public Use
  Company Number: CHPA2008US07110

PATIENT
  Age: 44 Year
  Sex: Female

DRUGS (1)
  1. KERI ORIGINAL (NCH)(NO INGREDIENTS/SUBSTANCES) LOTION [Suspect]
     Indication: DRY SKIN
     Dosage: TOPICAL
     Route: 061

REACTIONS (3)
  - COLOSTOMY [None]
  - PRURITUS [None]
  - URTICARIA [None]
